FAERS Safety Report 6200232-6 (Version None)
Quarter: 2009Q2

REPORT INFORMATION
  Report Type: 
  Country: None (occurrence: None)
  Receive Date: 20090522
  Receipt Date: 20090514
  Transmission Date: 20091009
  Serious: Yes (Other)
  Sender: FDA-Public Use
  Company Number: CH-JNJFOC-20090500609

PATIENT
  Sex: Female
  Weight: 110 kg

DRUGS (4)
  1. INVEGA [Suspect]
     Indication: PSYCHOTIC DISORDER
     Route: 048
  2. INVEGA [Suspect]
     Indication: DEPRESSION
     Route: 048
  3. LAMICTAL [Concomitant]
     Route: 048
  4. SAROTEN [Concomitant]
     Route: 048

REACTIONS (5)
  - BREAST SWELLING [None]
  - BREAST TENDERNESS [None]
  - GALACTORRHOEA [None]
  - MYALGIA [None]
  - PAIN IN EXTREMITY [None]
